FAERS Safety Report 7531179-0 (Version None)
Quarter: 2011Q2

REPORT INFORMATION
  Report Type: 
  Country: None (occurrence: None)
  Receive Date: 20110608
  Receipt Date: 20110531
  Transmission Date: 20111010
  Serious: Yes (Other)
  Sender: FDA-Public Use
  Company Number: FR-CELGENEUS-056-21880-11060018

PATIENT
  Sex: Female

DRUGS (3)
  1. MORPHINE SULFATE [Concomitant]
     Dosage: 10 MILLIGRAM
     Route: 065
     Dates: start: 20070716
  2. REVLIMID [Suspect]
     Indication: MULTIPLE MYELOMA
     Dosage: 10 MILLIGRAM
     Route: 048
     Dates: start: 20070420, end: 20070614
  3. MORPHINE SULFATE [Concomitant]
     Indication: PAIN
     Dosage: 30 MILLIGRAM
     Route: 065
     Dates: start: 20070716

REACTIONS (1)
  - RENAL CELL CARCINOMA [None]
